FAERS Safety Report 5517696-3 (Version None)
Quarter: 2007Q4

REPORT INFORMATION
  Report Type: 
  Country: None (occurrence: None)
  Receive Date: 20071114
  Receipt Date: 20071107
  Transmission Date: 20080405
  Serious: Yes (Hospitalization, Other)
  Sender: FDA-Public Use
  Company Number: US-ELI_LILLY_AND_COMPANY-US200711001741

PATIENT
  Sex: Male

DRUGS (6)
  1. CYMBALTA [Suspect]
     Indication: DEPRESSION
     Dosage: 1 D/F, EACH MORNING
  2. CYMBALTA [Suspect]
     Dosage: 90 MG, EACH MORNING
  3. ZYPREXA [Suspect]
     Indication: BIPOLAR DISORDER
     Dosage: 5 MG, UNK
     Dates: start: 20071106
  4. TOPAMAX [Concomitant]
     Dosage: 100 MG, UNK
  5. LAMICTAL [Concomitant]
     Dosage: 150 MG, UNK
  6. RISPERIDONE [Concomitant]
     Dosage: 4.5 MG, UNK

REACTIONS (7)
  - ABNORMAL BEHAVIOUR [None]
  - APATHY [None]
  - DISTURBANCE IN ATTENTION [None]
  - DISTURBANCE IN SOCIAL BEHAVIOUR [None]
  - ROAD TRAFFIC ACCIDENT [None]
  - SOMNOLENCE [None]
  - SUICIDAL IDEATION [None]
